FAERS Safety Report 9053642 (Version 1)
Quarter: 2013Q1

REPORT INFORMATION
  Report Type: Spontaneous
  Country: US (occurrence: None)
  Receive Date: 20130201
  Receipt Date: 20130201
  Transmission Date: 20140127
  Serious: No
  Sender: FDA-Public Use
  Company Number: None

PATIENT
  Sex: Male
  Weight: 83.5 kg

DRUGS (1)
  1. ABILIFY [Suspect]
     Dosage: 5MG/ 10 MG QAM/ QHS PO
     Dates: start: 20120826, end: 20120830

REACTIONS (2)
  - Speech disorder [None]
  - Hypoaesthesia [None]
